FAERS Safety Report 6985396-9 (Version None)
Quarter: 2010Q3

REPORT INFORMATION
  Report Type: 
  Country: None (occurrence: None)
  Receive Date: 20100915
  Receipt Date: 20100903
  Transmission Date: 20110219
  Serious: Yes (Other)
  Sender: FDA-Public Use
  Company Number: JP-PFIZER INC-2010102929

PATIENT
  Age: 67 Year
  Sex: Male
  Weight: 64.3 kg

DRUGS (3)
  1. ZYVOX [Suspect]
     Indication: SPONDYLITIS
     Dosage: 600 MG, 2X/DAY
     Route: 041
     Dates: start: 20100706, end: 20100723
  2. SULPERAZON [Suspect]
  3. VANCOMYCIN [Suspect]
     Dosage: UNK
     Route: 065
     Dates: end: 20100811

REACTIONS (1)
  - BONE MARROW FAILURE [None]
